FAERS Safety Report 7737088-6 (Version None)
Quarter: 2011Q3

REPORT INFORMATION
  Report Type: 
  Country: None (occurrence: None)
  Receive Date: 20110908
  Receipt Date: 20110905
  Transmission Date: 20111222
  Serious: Yes (Other)
  Sender: FDA-Public Use
  Company Number: GB-ROCHE-752446

PATIENT
  Sex: Female

DRUGS (2)
  1. TRASTUZUMAB [Suspect]
     Indication: BREAST CANCER
     Route: 065
  2. TRASTUZUMAB [Suspect]
     Route: 065

REACTIONS (6)
  - VENTRICULAR DYSFUNCTION [None]
  - OESOPHAGITIS [None]
  - EJECTION FRACTION DECREASED [None]
  - PARESIS [None]
  - DERMATITIS [None]
  - CARPAL TUNNEL SYNDROME [None]
